FAERS Safety Report 5277023-6 (Version None)
Quarter: 2007Q1

REPORT INFORMATION
  Report Type: 
  Country: None (occurrence: None)
  Receive Date: 20070327
  Receipt Date: 20070222
  Transmission Date: 20070707
  Serious: No
  Sender: FDA-Public Use
  Company Number: US-BRISTOL-MYERS SQUIBB COMPANY-13662564

PATIENT
  Age: 60 Year
  Sex: Female

DRUGS (9)
  1. ORENCIA [Suspect]
     Indication: RHEUMATOID ARTHRITIS
     Route: 042
     Dates: start: 20060531
  2. LODINE [Concomitant]
     Dates: start: 20060701
  3. IMITREX [Concomitant]
     Dates: start: 20030301
  4. AMBIEN [Concomitant]
     Dates: start: 20060201
  5. EFFEXOR [Concomitant]
     Dates: start: 20030301
  6. ALBUTEROL [Concomitant]
     Dates: start: 20030301
  7. FLOVENT [Concomitant]
     Dates: start: 20030301
  8. ASPIRIN [Concomitant]
     Dates: start: 20060201
  9. PRILOSEC [Concomitant]
     Dates: start: 20040701

REACTIONS (1)
  - ROSACEA [None]
